FAERS Safety Report 23238416 (Version 1)
Quarter: 2023Q4

REPORT INFORMATION
  Report Type: Report from Study
  Country: US (occurrence: US)
  Receive Date: 20231129
  Receipt Date: 20231129
  Transmission Date: 20240110
  Serious: Yes (Other)
  Sender: FDA-Public Use
  Company Number: US-002147023-NVSC2023US250499

PATIENT
  Sex: Female

DRUGS (1)
  1. ENTRESTO [Suspect]
     Active Substance: SACUBITRIL\VALSARTAN
     Indication: Product used for unknown indication
     Dosage: SACUBITRIL 97 MG/ VALSARTAN 103 MG, BID
     Route: 065
     Dates: start: 202304

REACTIONS (6)
  - Chronic kidney disease [Unknown]
  - Neuropathy peripheral [Unknown]
  - Weight increased [Unknown]
  - Pain [Unknown]
  - Constipation [Unknown]
  - Abdominal discomfort [Unknown]
